FAERS Safety Report 19261177 (Version 2)
Quarter: 2021Q2

REPORT INFORMATION
  Report Type: Spontaneous
  Country: CZ (occurrence: CZ)
  Receive Date: 20210515
  Receipt Date: 20210525
  Transmission Date: 20210717
  Serious: Yes (Death, Hospitalization)
  Sender: FDA-Public Use
  Company Number: CZ-ROCHE-2830514

PATIENT
  Age: 70 Year
  Sex: Female

DRUGS (4)
  1. BEVACIZUMAB. [Concomitant]
     Active Substance: BEVACIZUMAB
  2. TECENTRIQ [Suspect]
     Active Substance: ATEZOLIZUMAB
     Indication: NON-SMALL CELL LUNG CANCER
     Dosage: /AUG/2020, TREATMENT WITH ATEZOLIZUMAB WAS STARTED IN THE 3RD LINE
     Route: 041
     Dates: start: 202008
  3. VINORELBINE [Concomitant]
     Active Substance: VINORELBINE TARTRATE
  4. CARBOPLATIN. [Concomitant]
     Active Substance: CARBOPLATIN

REACTIONS (2)
  - Respiratory tract infection [Fatal]
  - Pyelonephritis [Unknown]

NARRATIVE: CASE EVENT DATE: 202010
